FAERS Safety Report 6347537-6 (Version None)
Quarter: 2009Q3

REPORT INFORMATION
  Report Type: 
  Country: None (occurrence: None)
  Receive Date: 20090910
  Receipt Date: 20090831
  Transmission Date: 20100115
  Serious: Yes (Hospitalization, Other)
  Sender: FDA-Public Use
  Company Number: US-CELGENEUS-163-21880-09071280

PATIENT
  Sex: Female
  Weight: 64.014 kg

DRUGS (13)
  1. REVLIMID [Suspect]
     Indication: MULTIPLE MYELOMA
     Route: 048
     Dates: start: 20090720
  2. REVLIMID [Suspect]
     Route: 048
     Dates: start: 20080901
  3. REVLIMID [Suspect]
     Route: 048
     Dates: start: 20081201
  4. REVLIMID [Suspect]
     Dosage: 15MG-10MG
     Route: 048
     Dates: start: 20090301, end: 20090101
  5. OMEPRAZOLE [Concomitant]
     Indication: DRUG USE FOR UNKNOWN INDICATION
     Route: 065
  6. LORAZEPAM [Concomitant]
     Indication: DRUG USE FOR UNKNOWN INDICATION
     Route: 065
  7. ALBUTEROL [Concomitant]
     Indication: ASTHMA
     Route: 065
  8. TRAZODONE [Concomitant]
     Indication: DRUG USE FOR UNKNOWN INDICATION
     Route: 065
  9. ACYCLOVIR [Concomitant]
     Indication: HERPES ZOSTER
     Route: 065
  10. MORPHINE [Concomitant]
     Indication: BONE PAIN
     Route: 065
  11. MORPHINE [Concomitant]
  12. OXYCODONE [Concomitant]
     Indication: BONE PAIN
     Route: 065
  13. OXYCODONE [Concomitant]

REACTIONS (4)
  - ABDOMINAL HERNIA [None]
  - BONE PAIN [None]
  - NEUROPATHY PERIPHERAL [None]
  - WOUND DEHISCENCE [None]
